FAERS Safety Report 6892418-2 (Version None)
Quarter: 2010Q3

REPORT INFORMATION
  Report Type: 
  Country: None (occurrence: None)
  Receive Date: 20100731
  Receipt Date: 20080512
  Transmission Date: 20110219
  Serious: Yes (Other)
  Sender: FDA-Public Use
  Company Number: US-PFIZER INC-2008036469

PATIENT
  Sex: Male

DRUGS (12)
  1. GABAPENTIN [Suspect]
     Indication: NEURALGIA
     Dates: start: 20080409
  2. ADVAIR DISKUS 100/50 [Concomitant]
  3. ALBUTEROL [Concomitant]
  4. DIOVANE [Concomitant]
  5. VYTORIN [Concomitant]
  6. METFORMIN HCL [Concomitant]
  7. GLIMEPIRIDE [Concomitant]
  8. POTASSIUM [Concomitant]
  9. FUROSEMIDE [Concomitant]
  10. TAMSULOSIN HCL [Concomitant]
  11. FINASTERIDE [Concomitant]
  12. HYDROCODONE BITARTRATE [Concomitant]

REACTIONS (1)
  - BLOOD GLUCOSE INCREASED [None]
